FAERS Safety Report 16112680 (Version 2)
Quarter: 2019Q1

REPORT INFORMATION
  Report Type: Report from Study
  Country: US (occurrence: US)
  Receive Date: 20190325
  Receipt Date: 20190328
  Transmission Date: 20190418
  Serious: No
  Sender: FDA-Public Use
  Company Number: US-GILEAD-2019-0397301

PATIENT
  Age: 35 Year
  Sex: Male

DRUGS (1)
  1. LEDIPASVIR/SOFOSBUVIR - GENERIC [Suspect]
     Active Substance: LEDIPASVIR\SOFOSBUVIR
     Indication: CHRONIC HEPATITIS C
     Dosage: 1 DF, QD
     Route: 048
     Dates: start: 20190310

REACTIONS (2)
  - Intentional product use issue [Unknown]
  - Product packaging quantity issue [Unknown]
